FAERS Safety Report 20822571 (Version 2)
Quarter: 2022Q2

REPORT INFORMATION
  Report Type: Spontaneous
  Country: US (occurrence: US)
  Receive Date: 20220512
  Receipt Date: 20220517
  Transmission Date: 20220721
  Serious: Yes (Other)
  Sender: FDA-Public Use
  Company Number: US-PFIZER INC-202200695795

PATIENT
  Age: 65 Year
  Sex: Female
  Weight: 64.86 kg

DRUGS (4)
  1. PAXLOVID [Suspect]
     Active Substance: NIRMATRELVIR\RITONAVIR
     Indication: COVID-19 treatment
     Dosage: UNK
     Dates: start: 20220415, end: 20220418
  2. PAXLOVID [Suspect]
     Active Substance: NIRMATRELVIR\RITONAVIR
     Indication: Oxygen saturation decreased
  3. ZYRTEC-D [Concomitant]
     Active Substance: CETIRIZINE HYDROCHLORIDE\PSEUDOEPHEDRINE HYDROCHLORIDE
     Indication: Seasonal allergy
     Dosage: UNK, 2X/DAY (5MG / 120MG)
  4. SIMVASTATIN [Concomitant]
     Active Substance: SIMVASTATIN
     Indication: Blood cholesterol increased
     Dosage: ONE AT BEDTIME
     Dates: start: 202111

REACTIONS (17)
  - Migraine [Recovered/Resolved]
  - Nausea [Recovered/Resolved]
  - Vomiting [Recovered/Resolved with Sequelae]
  - Arrhythmia [Unknown]
  - Blood pressure increased [Unknown]
  - Dysgeusia [Recovered/Resolved with Sequelae]
  - Illness [Unknown]
  - Weight decreased [Recovered/Resolved with Sequelae]
  - Muscular weakness [Recovered/Resolved]
  - Photophobia [Recovered/Resolved]
  - Hyperacusis [Recovered/Resolved]
  - Electrocardiogram abnormal [Not Recovered/Not Resolved]
  - Dermatitis contact [Unknown]
  - Fatigue [Recovered/Resolved]
  - Feeling cold [Unknown]
  - Chills [Unknown]
  - Headache [Unknown]

NARRATIVE: CASE EVENT DATE: 20220401
